FAERS Safety Report 26198995 (Version 1)
Quarter: 2025Q4

REPORT INFORMATION
  Report Type: Report from Study
  Country: CN (occurrence: CN)
  Receive Date: 20251225
  Receipt Date: 20251225
  Transmission Date: 20260117
  Serious: Yes (Other)
  Sender: ROCHE
  Company Number: CN-ROCHE-10000464462

PATIENT

DRUGS (11)
  1. ATEZOLIZUMAB [Suspect]
     Active Substance: ATEZOLIZUMAB
     Indication: Small cell lung cancer
  2. ADEBRELIMAB [Suspect]
     Active Substance: ADEBRELIMAB
     Indication: Small cell lung cancer
  3. DURVALUMAB [Suspect]
     Active Substance: DURVALUMAB
     Indication: Small cell lung cancer
  4. NIVOLUMAB [Suspect]
     Active Substance: NIVOLUMAB
     Indication: Small cell lung cancer
  5. CAMRELIZUMAB [Suspect]
     Active Substance: CAMRELIZUMAB
     Indication: Small cell lung cancer
  6. TORIPALIMAB [Suspect]
     Active Substance: TORIPALIMAB
     Indication: Small cell lung cancer
  7. TISLELIZUMAB [Suspect]
     Active Substance: TISLELIZUMAB
     Indication: Small cell lung cancer
  8. SINTILIMAB [Suspect]
     Active Substance: SINTILIMAB
     Indication: Small cell lung cancer
  9. CATEQUENTINIB [Suspect]
     Active Substance: CATEQUENTINIB
     Indication: Small cell lung cancer
  10. RIVOCERANIB [Suspect]
     Active Substance: RIVOCERANIB
     Indication: Small cell lung cancer
  11. FAMITINIB [Suspect]
     Active Substance: FAMITINIB
     Indication: Small cell lung cancer

REACTIONS (28)
  - White blood cell count decreased [Unknown]
  - Platelet count decreased [Unknown]
  - Neutrophil count decreased [Unknown]
  - Aspartate aminotransferase increased [Unknown]
  - Alanine aminotransferase increased [Unknown]
  - Gamma-glutamyltransferase increased [Unknown]
  - Hyponatraemia [Unknown]
  - Cardiac failure [Unknown]
  - Hypertension [Unknown]
  - Fatigue [Unknown]
  - Anaemia [Unknown]
  - Blood bilirubin increased [Unknown]
  - Blood alkaline phosphatase increased [Unknown]
  - Blood creatinine increased [Unknown]
  - Proteinuria [Unknown]
  - Faecal occult blood positive [Unknown]
  - Hypothyroidism [Unknown]
  - Blood thyroid stimulating hormone increased [Unknown]
  - Interstitial lung disease [Unknown]
  - Nausea [Unknown]
  - Vomiting [Unknown]
  - Weight decreased [Unknown]
  - Rash [Unknown]
  - Diarrhoea [Unknown]
  - Haemoptysis [Unknown]
  - Stomatitis [Unknown]
  - Dysphonia [Unknown]
  - Palmar-plantar erythrodysaesthesia syndrome [Unknown]
